FAERS Safety Report 4528859-8 (Version None)
Quarter: 2004Q4

REPORT INFORMATION
  Report Type: 
  Country: None (occurrence: None)
  Receive Date: 20041214
  Receipt Date: 20041201
  Transmission Date: 20050328
  Serious: Yes (Death)
  Sender: FDA-Public Use
  Company Number: 2004-BP-12564BR

PATIENT
  Age: 80 Year
  Sex: Male

DRUGS (6)
  1. SPIRIVA [Suspect]
     Indication: CHRONIC OBSTRUCTIVE AIRWAYS DISEASE
     Dosage: 18 MCG (18 MCG, 1 KAI OAD)
     Route: 055
     Dates: start: 20030627, end: 20030710
  2. NIFEDIPINE [Concomitant]
  3. CAPTOPRIL [Concomitant]
  4. BETA 2 (BETA 2 AGONIST) [Concomitant]
  5. CORTICOIDE (NON-SPECIFIED CORTICOID) [Concomitant]
  6. WARFARIN SODIUM [Concomitant]

REACTIONS (1)
  - RESPIRATORY FAILURE [None]
